FAERS Safety Report 17229697 (Version 1)
Quarter: 2019Q4

REPORT INFORMATION
  Report Type: Spontaneous
  Country: US (occurrence: US)
  Receive Date: 20191210
  Receipt Date: 20191210
  Transmission Date: 20200122
  Serious: Yes (Disabling)
  Sender: FDA-Public Use
  Company Number: None

PATIENT
  Age: 79 Year
  Sex: Male
  Weight: 68.04 kg

DRUGS (5)
  1. VITAMIN B12 [Concomitant]
     Active Substance: CYANOCOBALAMIN
  2. LISINOPRIL. [Concomitant]
     Active Substance: LISINOPRIL
  3. ATORVASTATIN 10MG TABLETS [Suspect]
     Active Substance: ATORVASTATIN
     Indication: BLOOD CHOLESTEROL INCREASED
     Dosage: ?          QUANTITY:0.5 MG MILLIGRAM(S);?
     Route: 048
     Dates: start: 2015
  4. AMLODIPINE BESYLATE. [Concomitant]
     Active Substance: AMLODIPINE BESYLATE
  5. CARVEDILOL. [Concomitant]
     Active Substance: CARVEDILOL

REACTIONS (11)
  - Dysphonia [None]
  - Headache [None]
  - Dizziness [None]
  - Myopathy [None]
  - Gait disturbance [None]
  - Fatigue [None]
  - Asthenia [None]
  - Rash [None]
  - Balance disorder [None]
  - Appetite disorder [None]
  - Visual impairment [None]

NARRATIVE: CASE EVENT DATE: 20191115
